FAERS Safety Report 12277146 (Version 1)
Quarter: 2016Q2

REPORT INFORMATION
  Report Type: Other
  Country: IT (occurrence: IT)
  Receive Date: 20160418
  Receipt Date: 20160418
  Transmission Date: 20160815
  Serious: Yes (Other)
  Sender: FDA-Public Use
  Company Number: IT-MYLANLABS-2016M1015523

PATIENT

DRUGS (3)
  1. AMOXICILLIN/CLAVULANIC ACID [Suspect]
     Active Substance: AMOXICILLIN\CLAVULANIC ACID
     Indication: HELICOBACTER INFECTION
     Dosage: 1 DF, TOTAL
     Route: 048
     Dates: start: 20160224, end: 20160224
  2. RABEPRAZOLO DOC [Suspect]
     Active Substance: RABEPRAZOLE SODIUM
     Indication: HELICOBACTER INFECTION
     Dosage: 1 DF, TOTAL
     Route: 048
     Dates: start: 20160224
  3. LEVOFLOXACIN MYLAN [Suspect]
     Active Substance: LEVOFLOXACIN
     Indication: HELICOBACTER INFECTION
     Dosage: 1 DF, TOTAL
     Route: 051
     Dates: start: 20160224, end: 20160224

REACTIONS (4)
  - Upper respiratory tract congestion [Unknown]
  - Cough [Unknown]
  - Angioedema [Recovering/Resolving]
  - Drug hypersensitivity [Recovering/Resolving]

NARRATIVE: CASE EVENT DATE: 20160224
